FAERS Safety Report 6602949-8 (Version None)
Quarter: 2010Q1

REPORT INFORMATION
  Report Type: 
  Country: None (occurrence: None)
  Receive Date: 20100219
  Receipt Date: 20100208
  Transmission Date: 20100710
  Serious: Yes (Death)
  Sender: FDA-Public Use
  Company Number: 1000011872

PATIENT
  Age: 37 Year
  Sex: Male

DRUGS (2)
  1. CITALOPRAM HYDROBROMIDE [Suspect]
     Dosage: DOES NOT SPECIFIED (ONCE), ORAL
     Route: 048
     Dates: start: 20060401, end: 20060401
  2. CLOZARIL [Suspect]
     Indication: SCHIZOPHRENIA
     Dosage: DOES NOT SPECIFIED (ONCE), ORAL
     Route: 048
     Dates: start: 20060401, end: 20060401

REACTIONS (4)
  - ANTIPSYCHOTIC DRUG LEVEL INCREASED [None]
  - COMPLETED SUICIDE [None]
  - DEPRESSION [None]
  - OVERDOSE [None]
